FAERS Safety Report 10763878 (Version 1)
Quarter: 2015Q1

REPORT INFORMATION
  Report Type: Report from Study
  Country: AU (occurrence: AU)
  Receive Date: 20150204
  Receipt Date: 20150204
  Transmission Date: 20150721
  Serious: Yes (Other)
  Sender: FDA-Public Use
  Company Number: AU-BAXTER-2015BAX004383

PATIENT
  Age: 24 Year
  Sex: Female

DRUGS (19)
  1. KETAMINE [Suspect]
     Active Substance: KETAMINE
     Indication: COLECTOMY TOTAL
     Route: 065
  2. MIDAZOLAM [Suspect]
     Active Substance: MIDAZOLAM\MIDAZOLAM HYDROCHLORIDE
     Indication: COLECTOMY TOTAL
     Route: 065
  3. MORPHINE [Suspect]
     Active Substance: MORPHINE
     Indication: COLECTOMY TOTAL
     Route: 065
  4. PROPOFOL. [Suspect]
     Active Substance: PROPOFOL
     Indication: COLECTOMY TOTAL
     Route: 065
  5. PROPOFOL. [Suspect]
     Active Substance: PROPOFOL
     Dosage: TWELVE WEEKS LATER
     Route: 065
  6. ORAL CONTRACEPTIVE [Suspect]
     Active Substance: UNSPECIFIED INGREDIENT
     Indication: COLECTOMY TOTAL
     Route: 048
  7. BAXTER SEVOFLURANE 250ML INHALATION LIQUID BOTTLE - 106647 [Suspect]
     Active Substance: SEVOFLURANE
     Indication: COLECTOMY TOTAL
     Route: 055
  8. BAXTER 0.5% METRONIDAZOLE BP INTRAVENOUS INFUSION 500MG_100ML INJECTIO [Suspect]
     Active Substance: METRONIDAZOLE
     Dosage: TWELVE WEEKS LATER
     Route: 065
  9. MIDAZOLAM [Suspect]
     Active Substance: MIDAZOLAM\MIDAZOLAM HYDROCHLORIDE
     Dosage: TWELVE WEEKS LATER
     Route: 065
  10. KETAMINE [Suspect]
     Active Substance: KETAMINE
     Dosage: TWELVE WEEKS LATER
     Route: 065
  11. MORPHINE [Suspect]
     Active Substance: MORPHINE
     Dosage: TWELVE WEEKS LATER
     Route: 065
  12. BAXTER SEVOFLURANE 250ML INHALATION LIQUID BOTTLE - 106647 [Suspect]
     Active Substance: SEVOFLURANE
     Dosage: TWELVE WEEKS LATER
     Route: 055
  13. BAXTER 0.5% METRONIDAZOLE BP INTRAVENOUS INFUSION 500MG_100ML INJECTIO [Suspect]
     Active Substance: METRONIDAZOLE
     Indication: COLECTOMY TOTAL
     Route: 065
  14. AERRANE ISOFLURANE 1ML_ML INHALATION BOTTLE [Suspect]
     Active Substance: ISOFLURANE
     Indication: COLECTOMY TOTAL
     Route: 065
  15. CISATRACURIUM [Suspect]
     Active Substance: CISATRACURIUM
     Dosage: TWELVE WEEKS LATER
     Route: 065
  16. CEFTRIAXONE. [Suspect]
     Active Substance: CEFTRIAXONE
     Indication: COLECTOMY TOTAL
     Route: 065
  17. FENTANYL. [Suspect]
     Active Substance: FENTANYL
     Indication: COLECTOMY TOTAL
     Route: 065
  18. CISATRACURIUM [Suspect]
     Active Substance: CISATRACURIUM
     Indication: COLECTOMY TOTAL
     Route: 065
  19. CEFTRIAXONE. [Suspect]
     Active Substance: CEFTRIAXONE
     Dosage: TWELVE WEEKS LATER
     Route: 065

REACTIONS (4)
  - Vomiting [Recovered/Resolved]
  - Herpes zoster [Unknown]
  - Jaundice [Recovered/Resolved]
  - Drug-induced liver injury [Recovered/Resolved]
